FAERS Safety Report 10558952 (Version 1)
Quarter: 2014Q4

REPORT INFORMATION
  Report Type: Spontaneous
  Country: IN (occurrence: IN)
  Receive Date: 20141102
  Receipt Date: 20141102
  Transmission Date: 20150529
  Serious: Yes (Hospitalization)
  Sender: FDA-Public Use
  Company Number: IN-009507513-1410IND015501

PATIENT
  Age: 53 Year
  Sex: Female
  Weight: 59 kg

DRUGS (1)
  1. JANUMET [Suspect]
     Active Substance: METFORMIN HYDROCHLORIDE\SITAGLIPTIN PHOSPHATE
     Indication: DIABETES MELLITUS
     Dosage: 2 DF, QD
     Route: 048
     Dates: end: 201410

REACTIONS (5)
  - Inappropriate schedule of drug administration [Unknown]
  - Blood glucose increased [Recovering/Resolving]
  - Blood glucose fluctuation [Unknown]
  - Urinary tract infection [Unknown]
  - Blood ketone body present [Unknown]

NARRATIVE: CASE EVENT DATE: 20141022
